FAERS Safety Report 7122412-8 (Version None)
Quarter: 2010Q4

REPORT INFORMATION
  Report Type: 
  Country: None (occurrence: None)
  Receive Date: 20101112
  Receipt Date: 20101101
  Transmission Date: 20110411
  Serious: Yes (Hospitalization)
  Sender: FDA-Public Use
  Company Number: 2010MA004091

PATIENT
  Age: 24 Year
  Sex: Male

DRUGS (3)
  1. SULFATRIM [Suspect]
     Indication: PNEUMOCYSTIS JIROVECI PNEUMONIA
  2. PREDNISOLONE [Concomitant]
  3. . [Concomitant]

REACTIONS (8)
  - CHOLESTASIS [None]
  - CYTOMEGALOVIRUS VIRAEMIA [None]
  - HEPATIC LESION [None]
  - HEPATITIS [None]
  - HEPATOTOXICITY [None]
  - LIVER INJURY [None]
  - PYREXIA [None]
  - RESPIRATORY FAILURE [None]
